FAERS Safety Report 25290024 (Version 1)
Quarter: 2025Q2

REPORT INFORMATION
  Report Type: Spontaneous
  Country: US (occurrence: US)
  Receive Date: 20250509
  Receipt Date: 20250509
  Transmission Date: 20250716
  Serious: Yes (Death, Hospitalization, Other)
  Sender: ASTELLAS
  Company Number: US-ASTELLAS-2025-AER-024913

PATIENT
  Age: 31 Year
  Sex: Female

DRUGS (1)
  1. TACROLIMUS [Suspect]
     Active Substance: TACROLIMUS
     Indication: Lung transplant
     Route: 065

REACTIONS (6)
  - Toxicity to various agents [Fatal]
  - Kaposi^s sarcoma [Fatal]
  - Kaposi sarcoma inflammatory cytokine syndrome [Fatal]
  - Shock [Fatal]
  - Respiratory failure [Fatal]
  - Cytomegalovirus viraemia [Unknown]
